FAERS Safety Report 9555876 (Version 1)
Quarter: 2013Q3

REPORT INFORMATION
  Report Type: Spontaneous
  Country: US (occurrence: None)
  Receive Date: 20130726
  Receipt Date: 20130726
  Transmission Date: 20140515
  Serious: Yes (Hospitalization, Other)
  Sender: FDA-Public Use
  Company Number: UTC-023643

PATIENT
  Age: 55 Year
  Sex: Male
  Weight: 101.8 kg

DRUGS (2)
  1. REMODULIN [Suspect]
     Indication: PORTOPULMONARY HYPERTENSION
     Dates: start: 20120501
  2. REMODULIN [Suspect]
     Indication: COR PULMONALE CHRONIC
     Dates: start: 20120501

REACTIONS (2)
  - Colitis [None]
  - Thrombocytopenia [None]
